FAERS Safety Report 24773006 (Version 1)
Quarter: 2024Q4

REPORT INFORMATION
  Report Type: Spontaneous
  Country: GB (occurrence: GB)
  Receive Date: 20241225
  Receipt Date: 20241225
  Transmission Date: 20250114
  Serious: Yes (Hospitalization, Other)
  Sender: Unknown Manufacturer
  Company Number: None

PATIENT
  Age: 84 Year
  Sex: Male

DRUGS (18)
  1. GLIMEPIRIDE [Suspect]
     Active Substance: GLIMEPIRIDE
     Indication: Product used for unknown indication
     Dosage: EVERY MORNING?GLIMEPIRIDE 2 MG TABLETS EVERY MORNING- STOPPED
  2. IRBESARTAN [Suspect]
     Active Substance: IRBESARTAN
     Indication: Product used for unknown indication
     Dosage: EVERY MORNING?IRBESARTAN 75 MG TABLETS
  3. METFORMIN [Suspect]
     Active Substance: METFORMIN HYDROCHLORIDE
     Indication: Product used for unknown indication
     Dosage: TWICE A DAY?METFORMIN 1 G MODIFIED-RELEASE TABLETS
  4. LERCANIDIPINE [Suspect]
     Active Substance: LERCANIDIPINE
     Indication: Hypertension
     Dosage: 10 MG TABLETS ONCE A DAY TEATIME ? - PATIENT STATES HE REMOVES FROM B^PACK AS GP TOLD HIM TO NOT TAK
  5. FUROSEMIDE [Suspect]
     Active Substance: FUROSEMIDE
     Indication: Product used for unknown indication
     Dosage: EVERY MORNING?FUROSEMIDE 40 MG TABLETS EVERY MORNING- STOPPED
  6. LANSOPRAZOLE [Concomitant]
     Active Substance: LANSOPRAZOLE
     Indication: Product used for unknown indication
     Dosage: TWICE A DAY?LANSOPRAZOLE 30 MG GASTRO-RESISTANT CAPSULES
  7. Calcichew D3 Forte chewable tablets (DE Pharmaceuticals) [Concomitant]
     Indication: Product used for unknown indication
     Dosage: TWICE A DAY
  8. Alendronic acid 70mg tablets (A A H Pharmaceuticals Ltd) [Concomitant]
     Indication: Product used for unknown indication
     Dosage: ONCE A WEEK ON THURSDAYS?ALENDRONIC ACID 70 MG TABLETS ONCE A WEEK ON THURSDAYS
  9. ATORVASTATIN [Concomitant]
     Active Substance: ATORVASTATIN
     Indication: Product used for unknown indication
     Dosage: EVERY NIGHT?ATORVASTATIN 80 MG TABLETS
  10. EDOXABAN [Concomitant]
     Active Substance: EDOXABAN
     Indication: Product used for unknown indication
     Dosage: EVERY MORNING?EDOXABAN 60 MG TABLETS EVERY MORNING - REDUCED DUE TO AKI + HELD DUE TO HAEMORRHAGE
  11. Ferrous fumarate 210mg tablets (A A H Pharmaceuticals Ltd) [Concomitant]
     Indication: Product used for unknown indication
     Dosage: ONE TO BE TAKEN DAILY?FERROUS FUMARATE 210 MG TABLETS
  12. Glycerol 4 g suppositories [Concomitant]
     Indication: Product used for unknown indication
     Dosage: ONE TO BE INSERTED AS DIRECTED
  13. SERTRALINE [Concomitant]
     Active Substance: SERTRALINE HYDROCHLORIDE
     Indication: Product used for unknown indication
     Dosage: ONE TO BE TAKEN EACH DAY 28 TABLET - PT STATES NEVER HEARD OF IT, NOT TAKING - CONFIRMED WITH SON ,
  14. GABAPENTIN [Concomitant]
     Active Substance: GABAPENTIN
     Indication: Product used for unknown indication
     Dosage: THREE TIMES A DAY?GABAPENTIN 300 MG CAPSULES
  15. Laxido Orange oral powder sachets sugar free [Concomitant]
     Indication: Constipation
     Dosage: TAKE ONE TWICE A DAY FOR CONSTIPATION - DOESN^T NEED CURRENTLY BUT WAS USING PRE-ADMISSION
     Route: 048
  16. Oxycodone 5 mg / 5 ml oral solution sugar free [Concomitant]
     Indication: Pain
     Dosage: 2.5 ML TO BE TAKEN EVERY 6 HOURS WHEN REQUIRED FOR PAIN ?250 ML - ONLY NEEDS COUPLE TIMES A WEEK. PT
     Route: 048
  17. Gaviscon Advance oral suspension peppermint (Forum Health Products Ltd [Concomitant]
     Indication: Product used for unknown indication
     Dosage: 5-10 MLS UPTO FOUR TIMES A DAY- AS NEEDED RARELY NEEDS
     Route: 048
  18. Co-codamol 30mg/500mg caplets (A A H Pharmaceuticals Ltd) [Concomitant]
     Indication: Product used for unknown indication
     Dosage: 2 FOUR TIMES A DAY (DO NOT USE PARACETAMOL WHILE ON CO-CODAMOL) 100 TABLET - TAKES 1-2 TIMES PER DAY

REACTIONS (1)
  - Acute kidney injury [Recovered/Resolved]
